FAERS Safety Report 20220581 (Version 5)
Quarter: 2022Q1

REPORT INFORMATION
  Report Type: Spontaneous
  Country: US (occurrence: US)
  Receive Date: 20211223
  Receipt Date: 20220111
  Transmission Date: 20220423
  Serious: No
  Sender: FDA-Public Use
  Company Number: US-UNITED THERAPEUTICS-UNT-2021-026141

PATIENT
  Age: 44 Year
  Sex: Female
  Weight: 105.22 kg

DRUGS (5)
  1. REMODULIN [Suspect]
     Active Substance: TREPROSTINIL
     Indication: Pulmonary arterial hypertension
     Dosage: UNK, CONTINUING
     Route: 058
     Dates: start: 20211214
  2. REMODULIN [Suspect]
     Active Substance: TREPROSTINIL
     Dosage: 0.018 ?G/KG, CONTINUING
     Route: 058
     Dates: start: 202112
  3. REMODULIN [Suspect]
     Active Substance: TREPROSTINIL
     Dosage: 0.020 ?G/KG, CONTINUING
     Route: 058
     Dates: start: 20211217
  4. REMODULIN [Suspect]
     Active Substance: TREPROSTINIL
     Dosage: 0.022 ?G/KG, CONTINUING
     Route: 058
     Dates: start: 20211220
  5. AMLODIPINE [Concomitant]
     Active Substance: AMLODIPINE BESYLATE
     Indication: Product used for unknown indication
     Dosage: UNK
     Route: 065

REACTIONS (22)
  - Feeling hot [Recovered/Resolved]
  - Hyperhidrosis [Recovered/Resolved]
  - Cold sweat [Recovered/Resolved]
  - Dizziness [Recovered/Resolved]
  - Infusion site pain [Unknown]
  - Dyspnoea exertional [Unknown]
  - Nausea [Unknown]
  - Muscle spasms [Unknown]
  - Headache [Recovering/Resolving]
  - Infusion site injury [Unknown]
  - Infusion site haemorrhage [Unknown]
  - Vomiting [Unknown]
  - Fatigue [Unknown]
  - Infusion site erythema [Unknown]
  - Infusion site warmth [Unknown]
  - Tachycardia [Unknown]
  - Irritability [Unknown]
  - Herpes zoster [Unknown]
  - Decreased appetite [Unknown]
  - Diarrhoea [Unknown]
  - Sciatica [Unknown]
  - Hypoaesthesia [Unknown]

NARRATIVE: CASE EVENT DATE: 20211201
